FAERS Safety Report 8574648-7 (Version None)
Quarter: 2012Q3

REPORT INFORMATION
  Report Type: 
  Country: None (occurrence: None)
  Receive Date: 20120807
  Receipt Date: 20120802
  Transmission Date: 20120928
  Serious: No
  Sender: FDA-Public Use
  Company Number: US-009507513-1208USA001572

PATIENT

DRUGS (7)
  1. PREMARIN [Concomitant]
  2. ATORVASTATIN [Concomitant]
  3. NASONEX [Suspect]
     Indication: SINUS DISORDER
     Dosage: UNK
     Route: 045
     Dates: start: 20120725, end: 20120802
  4. GLIMEPIRIDE [Concomitant]
  5. LISINOPRIL [Concomitant]
  6. PROAIR (PROCATEROL HYDROCHLORIDE) [Concomitant]
  7. AMOXICILLIN AND CLAVULANATE POTASSIUM [Concomitant]

REACTIONS (2)
  - ANOSMIA [None]
  - AGEUSIA [None]
